FAERS Safety Report 16384556 (Version 1)
Quarter: 2019Q3

REPORT INFORMATION
  Report Type: Spontaneous
  Country: US (occurrence: US)
  Receive Date: 20190531
  Receipt Date: 20190531
  Transmission Date: 20191004
  Serious: Yes (Other)
  Sender: FDA-Public Use
  Company Number: None

PATIENT
  Age: 68 Year
  Sex: Female
  Weight: 72.23 kg

DRUGS (10)
  1. B COMPLEX 100 TR [Concomitant]
  2. PANTOPRAZOLE SODIUM. [Concomitant]
     Active Substance: PANTOPRAZOLE SODIUM
  3. FIBER THERAPY [Concomitant]
     Active Substance: METHYLCELLULOSE (4000 MPA.S)
  4. SYNTHROID [Concomitant]
     Active Substance: LEVOTHYROXINE SODIUM
  5. ATORVASTATIN CALCIUM. [Concomitant]
     Active Substance: ATORVASTATIN CALCIUM
  6. FUROSEMIDE. [Concomitant]
     Active Substance: FUROSEMIDE
  7. VITAMIN D (CHOLECALCIFEROL) [Concomitant]
     Active Substance: CHOLECALCIFEROL
  8. CYCLOPHOSPHAMIDE. [Suspect]
     Active Substance: CYCLOPHOSPHAMIDE
     Indication: ENDOCRINE NEOPLASM MALIGNANT
     Route: 048
     Dates: start: 20181224, end: 20190509
  9. LYRICA [Concomitant]
     Active Substance: PREGABALIN
  10. CALCIUM CARBONATE ANTACID [Concomitant]

REACTIONS (1)
  - Disease progression [None]
